FAERS Safety Report 22293406 (Version 2)
Quarter: 2023Q2

REPORT INFORMATION
  Report Type: Report from Study
  Country: FR (occurrence: FR)
  Receive Date: 20230508
  Receipt Date: 20230513
  Transmission Date: 20230722
  Serious: No
  Sender: FDA-Public Use
  Company Number: FR-002147023-NVSC2023FR100543

PATIENT
  Age: 7 Year
  Sex: Female

DRUGS (3)
  1. OMNITROPE [Suspect]
     Active Substance: SOMATROPIN
     Indication: Product used for unknown indication
     Dosage: 0.5 MG (FOR 15 DAYS)
     Route: 065
  2. OMNITROPE [Suspect]
     Active Substance: SOMATROPIN
     Dosage: 0.7 MG (FOR 15 DAYS)
     Route: 065
  3. OMNITROPE [Suspect]
     Active Substance: SOMATROPIN
     Dosage: 0.8 MG (FOR 6 MONTHS)
     Route: 065

REACTIONS (1)
  - Injection site pain [Unknown]
